FAERS Safety Report 26109778 (Version 1)
Quarter: 2025Q4

REPORT INFORMATION
  Report Type: Spontaneous
  Country: CA (occurrence: CA)
  Receive Date: 20251201
  Receipt Date: 20251201
  Transmission Date: 20260117
  Serious: Yes (Other)
  Sender: PFIZER
  Company Number: CA-PFIZER INC-202500234073

PATIENT
  Age: 75 Year
  Sex: Female

DRUGS (12)
  1. METHOTREXATE SODIUM [Suspect]
     Active Substance: METHOTREXATE SODIUM
     Dosage: UNK
     Route: 013
  2. COSENTYX [Suspect]
     Active Substance: SECUKINUMAB
     Indication: Psoriatic arthropathy
     Dosage: 300 MG, 1X/DAY
     Route: 058
  3. COSENTYX [Suspect]
     Active Substance: SECUKINUMAB
     Dosage: 300 MG, WEEKLY
     Route: 042
  4. COSENTYX [Suspect]
     Active Substance: SECUKINUMAB
     Indication: Psoriatic arthropathy
     Dosage: 300 MG, WEEKLY
     Route: 042
  5. MORPHINE SULFATE [Suspect]
     Active Substance: MORPHINE SULFATE
     Dosage: 1 DF
     Route: 048
  6. PANTOPRAZOLE SODIUM [Suspect]
     Active Substance: PANTOPRAZOLE SODIUM
     Indication: Prophylaxis
     Dosage: UNK
     Route: 065
  7. ACETAMINOPHEN [Concomitant]
     Active Substance: ACETAMINOPHEN
     Dosage: UNK
     Route: 065
  8. ACETAMINOPHEN [Concomitant]
     Active Substance: ACETAMINOPHEN
     Dosage: UNK
     Route: 065
  9. CELEBREX [Concomitant]
     Active Substance: CELECOXIB
     Dosage: UNK
     Route: 065
  10. DICLOFENAC SODIUM [Concomitant]
     Active Substance: DICLOFENAC SODIUM
     Dosage: UNK
     Route: 065
  11. DICLOFENAC SODIUM [Concomitant]
     Active Substance: DICLOFENAC SODIUM
     Dosage: UNK
     Route: 065
  12. IBUPROFEN [Concomitant]
     Active Substance: IBUPROFEN
     Dosage: UNK
     Route: 065

REACTIONS (11)
  - Drug ineffective [Recovering/Resolving]
  - Body temperature increased [Recovering/Resolving]
  - Cough [Recovering/Resolving]
  - Illness [Recovering/Resolving]
  - Injection site bruising [Recovering/Resolving]
  - Malaise [Recovering/Resolving]
  - Nasopharyngitis [Recovering/Resolving]
  - Respiratory tract infection [Recovering/Resolving]
  - Rhinorrhoea [Recovering/Resolving]
  - Sinusitis [Recovering/Resolving]
  - Upper respiratory tract infection [Recovering/Resolving]
